FAERS Safety Report 7463625-5 (Version None)
Quarter: 2011Q2

REPORT INFORMATION
  Report Type: 
  Country: None (occurrence: None)
  Receive Date: 20110428
  Receipt Date: 20110415
  Transmission Date: 20111010
  Serious: Yes (Other)
  Sender: FDA-Public Use
  Company Number: JPI-P-014380

PATIENT
  Age: 59 Year
  Sex: Female
  Weight: 96.6162 kg

DRUGS (7)
  1. FENTANYL [Concomitant]
  2. XYREM [Suspect]
     Indication: CATAPLEXY
     Dosage: (4 GM FIRST DOSE/2.5 GM SECOND DOSE), ORAL (4.5 GM FIRST DOSE/3 GM SECOND DOSE), ORAL
     Route: 048
     Dates: start: 20110221, end: 20110101
  3. XYREM [Suspect]
     Indication: CATAPLEXY
     Dosage: (4 GM FIRST DOSE/2.5 GM SECOND DOSE), ORAL (4.5 GM FIRST DOSE/3 GM SECOND DOSE), ORAL
     Route: 048
     Dates: start: 20110101
  4. BUPROPION HYDROCHLORIDE [Concomitant]
  5. DULOXETINE HYDROCHLORIDE [Concomitant]
  6. TRAZODONE HCL [Concomitant]
  7. HYDROCODONE BITARTRATE AND ACETAMINOPHEN [Concomitant]

REACTIONS (12)
  - NAUSEA [None]
  - LIMB INJURY [None]
  - DYSGEUSIA [None]
  - FALL [None]
  - EPILEPSY [None]
  - FATIGUE [None]
  - HYPOPHAGIA [None]
  - INSOMNIA [None]
  - DIZZINESS [None]
  - HEADACHE [None]
  - URINARY TRACT INFECTION [None]
  - VOMITING [None]
